FAERS Safety Report 8521918-4 (Version None)
Quarter: 2012Q3

REPORT INFORMATION
  Report Type: 
  Country: None (occurrence: None)
  Receive Date: 20120719
  Receipt Date: 20120619
  Transmission Date: 20120928
  Serious: Yes (Other)
  Sender: FDA-Public Use
  Company Number: US-BRISTOL-MYERS SQUIBB COMPANY-16640617

PATIENT
  Age: 58 Year
  Sex: Female

DRUGS (7)
  1. CALCIUM CARBONATE [Concomitant]
     Indication: DYSPEPSIA
     Dosage: 1 DF = 200-400MG
     Route: 048
  2. COMPAZINE [Concomitant]
     Indication: NAUSEA
     Route: 048
     Dates: start: 20120421
  3. YERVOY [Suspect]
     Indication: MALIGNANT MELANOMA
     Dosage: 2ND THERPY ON 5/17/2012 (RECENT TREATMENT).
     Route: 042
     Dates: start: 20120426
  4. MULTI-VITAMIN [Concomitant]
     Route: 048
  5. VITAMIN D2 [Concomitant]
     Route: 048
  6. ZOFRAN [Concomitant]
     Indication: NAUSEA
     Route: 048
     Dates: start: 20120425
  7. PAXIL [Concomitant]
     Route: 048

REACTIONS (1)
  - RASH GENERALISED [None]
